FAERS Safety Report 16644122 (Version 1)
Quarter: 2019Q3

REPORT INFORMATION
  Report Type: Spontaneous
  Country: US (occurrence: US)
  Receive Date: 20190729
  Receipt Date: 20190729
  Transmission Date: 20191004
  Serious: Yes (Other)
  Sender: FDA-Public Use
  Company Number: US-PFIZER INC-2019323636

PATIENT
  Age: 61 Year
  Sex: Male
  Weight: 65 kg

DRUGS (18)
  1. VORICONAZOLE. [Interacting]
     Active Substance: VORICONAZOLE
     Indication: ASPERGILLUS INFECTION
  2. ABACAVIR SULFATE/DOLUTEGRAVIR SODIUM/LAMIVUDINE [Concomitant]
     Indication: ANTIRETROVIRAL THERAPY
     Dosage: 1 DF, DAILY (DOLUTEGRAVI 50 MG+ABACAVIR 600 MG+ LAMIVUDINE 300MG DAILY  (DAY 30-175, A.M.))
  3. DOLUTEGRAVIR [Concomitant]
     Active Substance: DOLUTEGRAVIR
     Indication: ANTIRETROVIRAL THERAPY
     Dosage: 50 MG, DAILY (DAY 30-175, P.M.)
  4. ATAZANAVIR. [Concomitant]
     Active Substance: ATAZANAVIR
     Indication: HIV INFECTION
  5. DARUNAVIR/RITONAVIR [Interacting]
     Active Substance: DARUNAVIR\RITONAVIR
     Indication: ANTIRETROVIRAL THERAPY
     Dosage: 1 DF, DAILY (800 MG DARUNAVIR;100 MG RITONAVIR)
  6. TENOFOVIR DISOPROXIL FUMARATE. [Concomitant]
     Active Substance: TENOFOVIR DISOPROXIL FUMARATE
     Indication: ANTIRETROVIRAL THERAPY
     Dosage: 300 MG, DAILY (PRIOR USE FOR 10 YEARS) (DAY 1-30)
  7. DOLUTEGRAVIR [Concomitant]
     Active Substance: DOLUTEGRAVIR
     Indication: HIV INFECTION
  8. VORICONAZOLE. [Suspect]
     Active Substance: VORICONAZOLE
     Indication: BRONCHOPULMONARY ASPERGILLOSIS
     Dosage: 200 MG, 2X/DAY
     Route: 048
  9. COBICISTAT/DARUNAVIR [Concomitant]
     Indication: ANTIRETROVIRAL THERAPY
     Dosage: 1 DF, DAILY (COBICISTAT 150 MG+ DARUNAVIR 800 MG (DAY 30-175, A.M.))
  10. COBICISTAT/DARUNAVIR [Concomitant]
     Indication: HIV INFECTION
  11. TENOFOVIR DISOPROXIL FUMARATE. [Concomitant]
     Active Substance: TENOFOVIR DISOPROXIL FUMARATE
     Indication: HIV INFECTION
  12. RALTEGRAVIR. [Concomitant]
     Active Substance: RALTEGRAVIR
     Indication: HIV INFECTION
     Dosage: 400 MG, 2X/DAY (DAY1-30)
  13. ATAZANAVIR. [Concomitant]
     Active Substance: ATAZANAVIR
     Indication: ANTIRETROVIRAL THERAPY
     Dosage: 400 MG, DAILY (DAY 1-30)
  14. ABACAVIR SULFATE/DOLUTEGRAVIR SODIUM/LAMIVUDINE [Concomitant]
     Indication: HIV INFECTION
  15. DARUNAVIR/RITONAVIR [Interacting]
     Active Substance: DARUNAVIR\RITONAVIR
     Indication: HIV INFECTION
  16. RALTEGRAVIR. [Concomitant]
     Active Substance: RALTEGRAVIR
     Indication: ANTIRETROVIRAL THERAPY
     Dosage: 400 MG, 2X/DAY (ALONG WITH ETRAVIRINE 200MG) (PRE VORICONAZOLE THERPY)
  17. ETRAVIRINE [Concomitant]
     Active Substance: ETRAVIRINE
     Indication: ANTIRETROVIRAL THERAPY
     Dosage: 200 MG, 2X/DAY (ALONG WITH RALTEGRAVIR 400MG) (PRE VORICONAZOLE THERPY)
  18. ETRAVIRINE [Concomitant]
     Active Substance: ETRAVIRINE
     Indication: HIV INFECTION

REACTIONS (3)
  - Drug interaction [Unknown]
  - Antiviral drug level below therapeutic [Unknown]
  - Blood HIV RNA increased [Recovered/Resolved]
